FAERS Safety Report 7276227-0 (Version None)
Quarter: 2011Q1

REPORT INFORMATION
  Report Type: 
  Country: None (occurrence: None)
  Receive Date: 20110204
  Receipt Date: 20110127
  Transmission Date: 20110831
  Serious: Yes (Hospitalization)
  Sender: FDA-Public Use
  Company Number: PHHY2011US07831

PATIENT
  Age: 12 Year
  Sex: Female

DRUGS (2)
  1. TOBI [Suspect]
     Indication: CYSTIC FIBROSIS
     Dosage: 1 AMPOULE BID (28 DAYS ON + 28 DAYS OFF)
     Dates: start: 20071221
  2. PULMOZYME [Concomitant]

REACTIONS (1)
  - LUNG DISORDER [None]
